FAERS Safety Report 17511836 (Version 1)
Quarter: 2020Q1

REPORT INFORMATION
  Report Type: Spontaneous
  Country: JP (occurrence: JP)
  Receive Date: 20200307
  Receipt Date: 20200307
  Transmission Date: 20200409
  Serious: Yes (Hospitalization)
  Sender: FDA-Public Use
  Company Number: JP-ACCORD-174348

PATIENT
  Age: 59 Year
  Sex: Male

DRUGS (4)
  1. PACLITAXEL/PACLITAXEL LIPOSOME [Suspect]
     Active Substance: PACLITAXEL
     Indication: GASTRIC CANCER
     Dosage: ON DAYS 1, 8, AND 15, REPEATED AT 28-DAY INTERVALS
  2. NIVOLUMAB [Suspect]
     Active Substance: NIVOLUMAB
     Indication: GASTRIC CANCER
     Dosage: BIWEEKLY
  3. GIMERACIL/OTERACIL/TEGAFUR [Suspect]
     Active Substance: GIMERACIL\OTERACIL\TEGAFUR
     Indication: GASTRIC CANCER
     Dosage: S-1 CHEMOTHERAPY, P.O, TWICE DAILY FOR 28 CONSECUTIVE DAYS, REPEATED AT 28-DAY INTERVALS
     Route: 048
  4. RAMUCIRUMAB [Suspect]
     Active Substance: RAMUCIRUMAB
     Indication: GASTRIC CANCER
     Dosage: ON DAYS 1 AND 15, REPEATED AT 28-DAY INTERVALS

REACTIONS (1)
  - Vascular pseudoaneurysm [Recovered/Resolved]
